FAERS Safety Report 5859158-X (Version None)
Quarter: 2008Q3

REPORT INFORMATION
  Report Type: 
  Country: None (occurrence: None)
  Receive Date: 20080825
  Receipt Date: 20080815
  Transmission Date: 20090109
  Serious: Yes (Life-Threatening)
  Sender: FDA-Public Use
  Company Number: S08-CAN-00986-01

PATIENT
  Weight: 2.75 kg

DRUGS (3)
  1. DINOPROSTONE (DINOPROSTONE) (10 MILLIGRAM, VAGINAL INSERT) [Suspect]
     Dosage: 10 MG (10 MG, ONCE), TRANSPLACENTAL
     Route: 064
     Dates: start: 20080205, end: 20080206
  2. DEMEROL [Concomitant]
  3. GRAVOL (DIMENHYDRINATE) (DIMENHYDRINATE) [Concomitant]

REACTIONS (6)
  - BLOOD PH DECREASED [None]
  - CAESAREAN SECTION [None]
  - FOETAL GROWTH RETARDATION [None]
  - FOETAL HEART RATE DECELERATION [None]
  - MATERNAL DRUGS AFFECTING FOETUS [None]
  - UMBILICAL CORD ABNORMALITY [None]
